FAERS Safety Report 19717842 (Version 5)
Quarter: 2025Q1

REPORT INFORMATION
  Report Type: Spontaneous
  Country: US (occurrence: US)
  Receive Date: 20210818
  Receipt Date: 20250217
  Transmission Date: 20250408
  Serious: Yes (Other)
  Sender: BAYER HEALTHCARE PHARMACEUTICALS INC.
  Company Number: US-BAYER-2021-190536

PATIENT
  Age: 55 Year
  Sex: Female

DRUGS (3)
  1. MIRENA [Suspect]
     Active Substance: LEVONORGESTREL
     Indication: Heavy menstrual bleeding
     Dosage: 20?G/DAY
     Route: 015
     Dates: start: 20150209, end: 201505
  2. MIRENA [Suspect]
     Active Substance: LEVONORGESTREL
     Indication: Hormone level abnormal
  3. MIRENA [Suspect]
     Active Substance: LEVONORGESTREL

REACTIONS (11)
  - Embedded device [None]
  - Internal haemorrhage [Not Recovered/Not Resolved]
  - Thrombosis [Not Recovered/Not Resolved]
  - Hemiparesis [Not Recovered/Not Resolved]
  - Muscular weakness [Not Recovered/Not Resolved]
  - Gait disturbance [Not Recovered/Not Resolved]
  - Abdominal pain [Not Recovered/Not Resolved]
  - Complication of device removal [None]
  - Device expulsion [Recovered/Resolved]
  - Sensorimotor disorder [None]
  - Mobility decreased [None]

NARRATIVE: CASE EVENT DATE: 20150101
